FAERS Safety Report 5239091-7 (Version None)
Quarter: 2007Q1

REPORT INFORMATION
  Report Type: 
  Country: None (occurrence: None)
  Receive Date: 20061208
  Receipt Date: 20050803
  Transmission Date: 20070707
  Serious: Yes (Other)
  Sender: FDA-Public Use
  Company Number: 2005UW09959

PATIENT
  Age: 81 Year
  Sex: Female
  Weight: 74.842 kg

DRUGS (4)
  1. CRESTOR [Suspect]
     Indication: BLOOD CHOLESTEROL INCREASED
     Dosage: 10 MG PO
     Route: 048
     Dates: start: 20050101, end: 20050101
  2. CRESTOR [Suspect]
     Indication: BLOOD CHOLESTEROL INCREASED
     Dosage: 10 MG PO
     Route: 048
     Dates: start: 20050101, end: 20050101
  3. VASOTEC [Concomitant]
  4. KLONOPIN [Concomitant]

REACTIONS (3)
  - DIZZINESS [None]
  - GINGIVAL PAIN [None]
  - GLOSSODYNIA [None]
